FAERS Safety Report 24067105 (Version 1)
Quarter: 2024Q3

REPORT INFORMATION
  Report Type: Spontaneous
  Country: RU (occurrence: RU)
  Receive Date: 20240709
  Receipt Date: 20240709
  Transmission Date: 20241017
  Serious: Yes (Other)
  Sender: ROCHE
  Company Number: RU-ROCHE-10000011925

PATIENT
  Age: 55 Year
  Sex: Female

DRUGS (15)
  1. PERTUZUMAB [Suspect]
     Active Substance: PERTUZUMAB
     Indication: Breast cancer
     Dosage: SIX CYCLES OF POLYCHEMOTHERAPY
     Route: 065
     Dates: start: 20200312, end: 20200720
  2. PERTUZUMAB [Suspect]
     Active Substance: PERTUZUMAB
     Indication: Human epidermal growth factor receptor positive
  3. ADO-TRASTUZUMAB EMTANSINE [Suspect]
     Active Substance: ADO-TRASTUZUMAB EMTANSINE
     Indication: Breast cancer
     Dosage: 3.6 MG/KG
     Route: 065
     Dates: start: 20230209
  4. ADO-TRASTUZUMAB EMTANSINE [Suspect]
     Active Substance: ADO-TRASTUZUMAB EMTANSINE
     Indication: Human epidermal growth factor receptor positive
  5. TRASTUZUMAB [Suspect]
     Active Substance: TRASTUZUMAB
     Indication: Breast cancer
     Dosage: SIX CYCLES OF POLYCHEMOTHERAPY
     Route: 065
     Dates: start: 20200312, end: 20200720
  6. TRASTUZUMAB [Suspect]
     Active Substance: TRASTUZUMAB
     Indication: Human epidermal growth factor receptor positive
     Dosage: 9 ADMINISTRATIONS OF TRASTUZUMAB WERE PERFORMED.
     Route: 065
     Dates: start: 2020
  7. TRASTUZUMAB [Suspect]
     Active Substance: TRASTUZUMAB
     Dosage: ADJUVANT TARGETED THERAPY WITH TRASTUZUMAB WAS COMPLETED.
     Route: 065
     Dates: start: 20210304
  8. TRASTUZUMAB [Suspect]
     Active Substance: TRASTUZUMAB
     Dosage: 6 MG/KG
     Route: 042
  9. PACLITAXEL [Suspect]
     Active Substance: PACLITAXEL
     Indication: Human epidermal growth factor receptor positive
     Dosage: 80 MG/M2 ON DAYS 1, 8, 15
     Route: 042
  10. PACLITAXEL [Suspect]
     Active Substance: PACLITAXEL
     Indication: Breast cancer
     Dosage: 12 ADMINISTRATION
     Route: 065
     Dates: start: 20211018
  11. CARBOPLATIN [Suspect]
     Active Substance: CARBOPLATIN
     Indication: Breast cancer
     Dosage: SIX CYCLES OF POLYCHEMOTHERAPY
     Route: 065
     Dates: start: 20200312, end: 20200720
  12. CARBOPLATIN [Suspect]
     Active Substance: CARBOPLATIN
     Indication: Human epidermal growth factor receptor positive
     Dosage: AUC -2 IV ON DAYS 1, 8, 15 ONCE EVERY 28 DAYS
     Route: 042
  13. CARBOPLATIN [Suspect]
     Active Substance: CARBOPLATIN
     Route: 065
     Dates: start: 20211018
  14. DOCETAXEL [Suspect]
     Active Substance: DOCETAXEL\DOCETAXEL ANHYDROUS
     Indication: Breast cancer
     Dosage: SIX CYCLES OF POLYCHEMOTHERAPY
     Route: 065
     Dates: start: 20200312, end: 20200720
  15. DOCETAXEL [Suspect]
     Active Substance: DOCETAXEL\DOCETAXEL ANHYDROUS
     Indication: Human epidermal growth factor receptor positive

REACTIONS (9)
  - Cholecystitis chronic [Unknown]
  - Thrombocytopenia [Unknown]
  - Hepatic steatosis [Unknown]
  - Uterine leiomyoma [Unknown]
  - Erythema [Unknown]
  - Radiation fibrosis - lung [Unknown]
  - Paranasal cyst [Unknown]
  - Cholelithiasis [Unknown]
  - Renal cyst [Unknown]

NARRATIVE: CASE EVENT DATE: 20230620
